FAERS Safety Report 24961744 (Version 1)
Quarter: 2025Q1

REPORT INFORMATION
  Report Type: Spontaneous
  Country: US (occurrence: US)
  Receive Date: 20250212
  Receipt Date: 20250212
  Transmission Date: 20250409
  Serious: Yes (Other)
  Sender: MYLAN
  Company Number: US-MYLANLABS-2025M1011020

PATIENT
  Age: 88 Year
  Sex: Male

DRUGS (1)
  1. MYCOPHENOLATE MOFETIL [Suspect]
     Active Substance: MYCOPHENOLATE MOFETIL
     Indication: Myasthenia gravis
     Route: 065

REACTIONS (6)
  - Histoplasmosis disseminated [Recovering/Resolving]
  - Leukocytosis [Recovering/Resolving]
  - Normocytic anaemia [Recovering/Resolving]
  - Hypokalaemia [Recovering/Resolving]
  - Acute kidney injury [Recovering/Resolving]
  - Off label use [Unknown]
